FAERS Safety Report 6863940-X (Version None)
Quarter: 2010Q3

REPORT INFORMATION
  Report Type: 
  Country: None (occurrence: None)
  Receive Date: 20100721
  Receipt Date: 20080323
  Transmission Date: 20110219
  Serious: No
  Sender: FDA-Public Use
  Company Number: US-PFIZER INC-2008022987

PATIENT
  Sex: Female
  Weight: 42.2 kg

DRUGS (4)
  1. CHANTIX [Suspect]
     Indication: SMOKING CESSATION THERAPY
     Dosage: BID:EVERYDAY
     Dates: start: 20080129
  2. CRESTOR [Concomitant]
  3. BENICAR [Concomitant]
     Indication: HYPERTENSION
  4. CALCIUM WITH VITAMIN D [Concomitant]

REACTIONS (7)
  - DRUG INTOLERANCE [None]
  - DYSGEUSIA [None]
  - EATING DISORDER [None]
  - FATIGUE [None]
  - FEELING ABNORMAL [None]
  - MALAISE [None]
  - NAUSEA [None]
